FAERS Safety Report 9725246 (Version 1)
Quarter: 2013Q4

REPORT INFORMATION
  Report Type: Spontaneous
  Country: US (occurrence: None)
  Receive Date: 20131129
  Receipt Date: 20131129
  Transmission Date: 20140711
  Serious: Yes (Hospitalization)
  Sender: FDA-Public Use
  Company Number: SYM-2013-13098

PATIENT
  Age: 87 Year
  Sex: Female

DRUGS (1)
  1. MAXAIR [Suspect]
     Indication: CHRONIC OBSTRUCTIVE PULMONARY DISEASE
     Dates: start: 201311

REACTIONS (2)
  - Cardiac failure congestive [None]
  - Arrhythmia [None]
